FAERS Safety Report 18572615 (Version 1)
Quarter: 2020Q4

REPORT INFORMATION
  Report Type: Spontaneous
  Country: FR (occurrence: FR)
  Receive Date: 20201202
  Receipt Date: 20201202
  Transmission Date: 20210114
  Serious: Yes (Other)
  Sender: FDA-Public Use
  Company Number: FR-BRISTOL-MYERS SQUIBB COMPANY-BMS-2020-101250

PATIENT
  Age: 82 Year
  Sex: Female
  Weight: 58 kg

DRUGS (1)
  1. ELIQUIS [Suspect]
     Active Substance: APIXABAN
     Indication: CEREBROVASCULAR ACCIDENT PROPHYLAXIS
     Dosage: 2.5 A TABLET OF 2.5 IN THE MORNING AND IN THE EVENING
     Route: 048
     Dates: end: 20201124

REACTIONS (1)
  - Femoral neck fracture [Unknown]

NARRATIVE: CASE EVENT DATE: 20201124
